FAERS Safety Report 4650243-7 (Version None)
Quarter: 2005Q2

REPORT INFORMATION
  Report Type: 
  Country: None (occurrence: None)
  Receive Date: 20050427
  Receipt Date: 20050419
  Transmission Date: 20051028
  Serious: Yes (Other)
  Sender: FDA-Public Use
  Company Number: 2005038683

PATIENT
  Age: 37 Year
  Sex: Female

DRUGS (17)
  1. TIKOSYN [Suspect]
     Indication: DRUG ADMINISTRATION ERROR
     Dosage: (125 MCG, DAILY INTERVAL: EVERY DAY), ORAL
     Route: 048
     Dates: start: 20050222, end: 20050228
  2. DILANTIN [Suspect]
     Indication: BRAIN ABSCESS
     Dosage: 200 MG (200 MG, DAILY INTERVAL: EVERY DAY)
     Dates: start: 20041104
  3. DILANTIN [Suspect]
     Indication: BRAIN OEDEMA
     Dosage: 200 MG (200 MG, DAILY INTERVAL: EVERY DAY)
     Dates: start: 20041104
  4. NYSTATIN [Concomitant]
  5. DOCUSATE SODIUM (DOCUSATE SODIUM) [Concomitant]
  6. BACTRIM [Concomitant]
  7. VALGANCICLOVIR HYDROCHLORIDE (VAGANCICLOVIR HYDROCHLORIDE) [Concomitant]
  8. FAMOTIDINE [Concomitant]
  9. FUROSEMIDE [Concomitant]
  10. PREDNISONE [Concomitant]
  11. MYCOPHENOLATE MOFETIL (MYCOPHNOLATE MOFETIL) [Concomitant]
  12. TACROLIMUS (TACROLIMUS) [Concomitant]
  13. ISOSORBIDE DINITRATE [Concomitant]
  14. HYDROXYZINE [Concomitant]
  15. METOCLOPRAMIDE [Concomitant]
  16. MORPHINE SULFATE [Concomitant]
  17. MORPHINE SULFATE [Concomitant]

REACTIONS (6)
  - ANXIETY [None]
  - ATRIAL SEPTAL DEFECT [None]
  - CHEST DISCOMFORT [None]
  - DRUG DISPENSING ERROR [None]
  - FEELING ABNORMAL [None]
  - PALPITATIONS [None]
